FAERS Safety Report 4580168-7 (Version None)
Quarter: 2005Q1

REPORT INFORMATION
  Report Type: 
  Country: None (occurrence: None)
  Receive Date: 20050214
  Receipt Date: 20050131
  Transmission Date: 20050727
  Serious: Yes (Death)
  Sender: FDA-Public Use
  Company Number: US-JNJFOC-20040306766

PATIENT
  Sex: Male

DRUGS (11)
  1. DURAGESIC [Suspect]
     Route: 062
     Dates: end: 20040207
  2. DURAGESIC [Suspect]
     Route: 062
     Dates: end: 20040207
  3. DURAGESIC [Suspect]
     Route: 062
     Dates: end: 20040207
  4. DURAGESIC [Suspect]
     Route: 062
     Dates: end: 20040207
  5. DURAGESIC [Suspect]
     Route: 062
     Dates: end: 20040207
  6. DURAGESIC [Suspect]
     Route: 062
     Dates: end: 20040207
  7. DURAGESIC [Suspect]
     Route: 062
     Dates: end: 20040207
  8. MORPHINE SULFATE [Concomitant]
  9. FAMOTIDINE [Concomitant]
  10. METACLOPROMIDE [Concomitant]
  11. FLUOXETINE [Concomitant]

REACTIONS (72)
  - ABDOMINAL ADHESIONS [None]
  - ABDOMINAL DISTENSION [None]
  - ABDOMINAL HERNIA [None]
  - ABDOMINAL PAIN [None]
  - ABDOMINAL STRANGULATED HERNIA [None]
  - ABNORMAL FAECES [None]
  - AGITATION [None]
  - ALCOHOL USE [None]
  - APNOEA [None]
  - APPLICATION SITE DERMATITIS [None]
  - APPLICATION SITE REACTION [None]
  - ARTHRALGIA [None]
  - BACK PAIN [None]
  - BACTERIAL INFECTION [None]
  - BLOOD GLUCOSE INCREASED [None]
  - BLOOD PRESSURE INCREASED [None]
  - CATHETER SITE CELLULITIS [None]
  - CELLULITIS [None]
  - CHEST DISCOMFORT [None]
  - CHEST PAIN [None]
  - COLD SWEAT [None]
  - COMA [None]
  - CONSTIPATION [None]
  - CYANOSIS [None]
  - DEPRESSION [None]
  - DIARRHOEA [None]
  - DISORIENTATION [None]
  - DRUG DEPENDENCE [None]
  - DRUG INEFFECTIVE [None]
  - DYSPNOEA [None]
  - FAECES DISCOLOURED [None]
  - FALL [None]
  - FEELING ABNORMAL [None]
  - FEELING HOT [None]
  - HYPERHIDROSIS [None]
  - HYPERSOMNIA [None]
  - ILEUS [None]
  - INADEQUATE ANALGESIA [None]
  - INCISION SITE COMPLICATION [None]
  - KLEBSIELLA BACTERAEMIA [None]
  - LETHARGY [None]
  - LOSS OF CONSCIOUSNESS [None]
  - MEDICATION ERROR [None]
  - MIOSIS [None]
  - MULTIPLE DRUG OVERDOSE ACCIDENTAL [None]
  - NARCOTIC INTOXICATION [None]
  - NAUSEA [None]
  - NECK PAIN [None]
  - OEDEMA PERIPHERAL [None]
  - OVERDOSE [None]
  - OXYGEN SATURATION DECREASED [None]
  - PAIN IN EXTREMITY [None]
  - PALLOR [None]
  - PERSONALITY CHANGE [None]
  - PHARMACEUTICAL PRODUCT COMPLAINT [None]
  - POST PROCEDURAL COMPLICATION [None]
  - PSYCHOMOTOR HYPERACTIVITY [None]
  - PULMONARY CONGESTION [None]
  - RENAL FAILURE ACUTE [None]
  - RESPIRATORY RATE INCREASED [None]
  - RHABDOMYOLYSIS [None]
  - SLEEP WALKING [None]
  - SMALL INTESTINAL OBSTRUCTION [None]
  - SOMNOLENCE [None]
  - STREPTOCOCCAL BACTERAEMIA [None]
  - TACHYCARDIA [None]
  - THERAPEUTIC RESPONSE DECREASED [None]
  - VOMITING [None]
  - WEIGHT DECREASED [None]
  - WEIGHT INCREASED [None]
  - WOUND DEHISCENCE [None]
  - WOUND INFECTION [None]
